FAERS Safety Report 8993927 (Version 3)
Quarter: 2013Q2

REPORT INFORMATION
  Report Type: Spontaneous
  Country: US (occurrence: US)
  Receive Date: 20130102
  Receipt Date: 20130506
  Transmission Date: 20140414
  Serious: Yes (Hospitalization)
  Sender: FDA-Public Use
  Company Number: US-AMGEN-USASP2012082985

PATIENT
  Age: 25 Year
  Sex: Male
  Weight: 72.56 kg

DRUGS (2)
  1. ENBREL [Suspect]
     Indication: RHEUMATOID ARTHRITIS
     Dosage: 50 MG, QWK
     Route: 058
     Dates: start: 201110
  2. METHOTREXATE [Suspect]
     Indication: RHEUMATOID ARTHRITIS
     Dosage: 2.5 MG, 6 TAB WEEKLY
     Route: 048
     Dates: start: 201108, end: 20130322

REACTIONS (5)
  - Pneumonia [Recovered/Resolved]
  - Malaise [Unknown]
  - Gingival pain [Not Recovered/Not Resolved]
  - Gingival bleeding [Not Recovered/Not Resolved]
  - Productive cough [Unknown]
